FAERS Safety Report 5133865-9 (Version None)
Quarter: 2006Q4

REPORT INFORMATION
  Report Type: 
  Country: None (occurrence: None)
  Receive Date: 20061018
  Receipt Date: 20061005
  Transmission Date: 20070319
  Serious: Yes (Hospitalization, Other)
  Sender: FDA-Public Use
  Company Number: 2005099374

PATIENT
  Age: 68 Year
  Sex: Female
  Weight: 68.4932 kg

DRUGS (11)
  1. DILANTIN [Suspect]
     Indication: CONVULSION PROPHYLAXIS
     Dosage: 300 MG (100 MG, 3 IN 1 D)
     Dates: start: 20031101
  2. NEURONTIN [Suspect]
     Indication: CONVULSION
     Dates: start: 20031101, end: 20050106
  3. LYRICA [Suspect]
     Indication: SIMPLE PARTIAL SEIZURES
     Dosage: 100 MG (50 MG, 2 IN 1 D)
     Dates: start: 20051201
  4. TRILEPTAL [Suspect]
     Indication: CONVULSION
     Dates: start: 20040301, end: 20050202
  5. KEPPRA [Suspect]
     Dates: start: 20040301, end: 20050202
  6. TOPAMAX [Suspect]
     Indication: CONVULSION
  7. ZETIA [Concomitant]
  8. ZOCOR [Concomitant]
  9. ASPIRIN [Concomitant]
  10. PHENOBARBITAL TAB [Concomitant]
  11. ZONEGRAN [Concomitant]

REACTIONS (23)
  - ARTHRALGIA [None]
  - ASTHENIA [None]
  - BLEPHAROSPASM [None]
  - BRUXISM [None]
  - CONVULSION [None]
  - DISTURBANCE IN ATTENTION [None]
  - DRY MOUTH [None]
  - DYSKINESIA [None]
  - EYE IRRITATION [None]
  - FATIGUE [None]
  - FEELING ABNORMAL [None]
  - GINGIVAL SWELLING [None]
  - HYPOAESTHESIA [None]
  - ILL-DEFINED DISORDER [None]
  - LOW DENSITY LIPOPROTEIN INCREASED [None]
  - MEMORY IMPAIRMENT [None]
  - MENTAL DISORDER [None]
  - MUSCLE SPASMS [None]
  - MUSCULOSKELETAL STIFFNESS [None]
  - NERVOUS SYSTEM DISORDER [None]
  - SIMPLE PARTIAL SEIZURES [None]
  - SOMNOLENCE [None]
  - TOOTH DEPOSIT [None]
